FAERS Safety Report 16723953 (Version 1)
Quarter: 2019Q3

REPORT INFORMATION
  Report Type: Spontaneous
  Country: DE (occurrence: DE)
  Receive Date: 20190821
  Receipt Date: 20190821
  Transmission Date: 20191005
  Serious: Yes (Death, Other)
  Sender: FDA-Public Use
  Company Number: PHHY2019DE193971

PATIENT
  Sex: Male
  Weight: 89 kg

DRUGS (2)
  1. APIXABAN [Suspect]
     Active Substance: APIXABAN
     Indication: EMBOLISM VENOUS
     Dosage: 5 MG, QD (2.5 MILLIGRAM, BID)
     Route: 048
     Dates: start: 20170222
  2. ASPIRIN. [Suspect]
     Active Substance: ASPIRIN
     Indication: PRODUCT USED FOR UNKNOWN INDICATION
     Dosage: 100 MG, UNK
     Route: 065

REACTIONS (4)
  - Haematoma [Fatal]
  - Urethral haemorrhage [Fatal]
  - Haematuria [Unknown]
  - Anaemia [Fatal]

NARRATIVE: CASE EVENT DATE: 20180119
